FAERS Safety Report 13100931 (Version 2)
Quarter: 2017Q1

REPORT INFORMATION
  Report Type: Spontaneous
  Country: DE (occurrence: DE)
  Receive Date: 20170110
  Receipt Date: 20170125
  Transmission Date: 20170428
  Serious: Yes (Hospitalization, Other)
  Sender: FDA-Public Use
  Company Number: DE-TEVA-727337ROM

PATIENT
  Age: 44 Year
  Sex: Male

DRUGS (3)
  1. ETOPOSIDE. [Suspect]
     Active Substance: ETOPOSIDE
     Indication: SEMINOMA
     Route: 065
  2. BLEOMYCIN [Suspect]
     Active Substance: BLEOMYCIN SULFATE
     Indication: SEMINOMA
     Route: 065
  3. CISPLATIN. [Suspect]
     Active Substance: CISPLATIN
     Indication: SEMINOMA
     Route: 065

REACTIONS (10)
  - Dysphagia [Recovered/Resolved]
  - Cerebral artery stenosis [Recovered/Resolved]
  - Cerebral infarction [Recovered/Resolved]
  - Facial paralysis [Recovered/Resolved]
  - Aphasia [Recovered/Resolved]
  - Pulmonary embolism [Recovered/Resolved]
  - Hypomagnesaemia [Recovered/Resolved]
  - Sensory loss [Recovered/Resolved]
  - Hemiparesis [Recovered/Resolved]
  - Cerebrovascular accident [Recovered/Resolved]
